FAERS Safety Report 10443927 (Version 1)
Quarter: 2014Q3

REPORT INFORMATION
  Report Type: Spontaneous
  Country: US (occurrence: US)
  Receive Date: 20140910
  Receipt Date: 20140910
  Transmission Date: 20150326
  Serious: No
  Sender: FDA-Public Use
  Company Number: US-TARO-2013P1020986

PATIENT
  Age: 69 Year
  Sex: Female
  Weight: 71.67 kg

DRUGS (14)
  1. ALPRAZOLAM. [Concomitant]
     Active Substance: ALPRAZOLAM
     Dates: start: 2005
  2. UNSPECIFIED PROBIOTIC [Concomitant]
  3. SYNTHROID [Concomitant]
     Active Substance: LEVOTHYROXINE SODIUM
     Dates: start: 2001
  4. WARFARIN SODIUM TABLETS USP 5MG [Suspect]
     Active Substance: WARFARIN SODIUM
     Dosage: 5 MG
     Route: 048
     Dates: start: 20130909, end: 201310
  5. XARELTO [Suspect]
     Active Substance: RIVAROXABAN
     Dates: start: 20131102, end: 20131102
  6. ATENOLOL. [Concomitant]
     Active Substance: ATENOLOL
     Dates: start: 1988
  7. WARFARIN SODIUM TABLETS USP 5MG [Suspect]
     Active Substance: WARFARIN SODIUM
     Route: 048
     Dates: start: 20131103
  8. VITAMIN B [Concomitant]
     Active Substance: VITAMIN B
  9. WARFARIN SODIUM TABLETS USP 5MG [Suspect]
     Active Substance: WARFARIN SODIUM
     Route: 048
     Dates: start: 201310, end: 20131102
  10. VITAMIN D [Concomitant]
     Active Substance: CHOLECALCIFEROL
  11. WARFARIN SODIUM TABLETS USP 2.5MG [Suspect]
     Active Substance: WARFARIN SODIUM
     Route: 048
     Dates: start: 201309, end: 20131102
  12. WARFARIN SODIUM TABLETS USP 2.5MG [Suspect]
     Active Substance: WARFARIN SODIUM
     Route: 048
     Dates: start: 20131103
  13. ENOXAPARIN 120 MG / 0.8 ML (WATSON) [Concomitant]
     Route: 058
     Dates: start: 20130909
  14. SYNTHROID [Concomitant]
     Active Substance: LEVOTHYROXINE SODIUM
     Dates: start: 2001

REACTIONS (8)
  - Pain [Not Recovered/Not Resolved]
  - Pain in extremity [Not Recovered/Not Resolved]
  - Muscular weakness [Not Recovered/Not Resolved]
  - Arthralgia [Not Recovered/Not Resolved]
  - Abdominal pain upper [Not Recovered/Not Resolved]
  - Abdominal distension [Not Recovered/Not Resolved]
  - Paraesthesia [Not Recovered/Not Resolved]
  - Oesophageal pain [Not Recovered/Not Resolved]

NARRATIVE: CASE EVENT DATE: 201309
